FAERS Safety Report 4548521-5 (Version None)
Quarter: 2005Q1

REPORT INFORMATION
  Report Type: 
  Country: None (occurrence: None)
  Receive Date: 20050110
  Receipt Date: 20050105
  Transmission Date: 20050727
  Serious: Yes (Hospitalization)
  Sender: FDA-Public Use
  Company Number: FR-GLAXOSMITHKLINE-B0363556A

PATIENT
  Age: 39 Year
  Sex: Male
  Weight: 65 kg

DRUGS (1)
  1. TRIZIVIR [Suspect]
     Indication: HIV INFECTION
     Dosage: 2UNIT TWICE PER DAY
     Route: 048
     Dates: start: 20041014, end: 20041028

REACTIONS (3)
  - ACCIDENTAL OVERDOSE [None]
  - CHEILITIS [None]
  - MEDICATION ERROR [None]
